FAERS Safety Report 6280217-4 (Version None)
Quarter: 2009Q3

REPORT INFORMATION
  Report Type: 
  Country: None (occurrence: None)
  Receive Date: 20090723
  Receipt Date: 20090717
  Transmission Date: 20100115
  Serious: Yes (Other)
  Sender: FDA-Public Use
  Company Number: GR-MERCK-0905GRC00008

PATIENT
  Age: 4 Year
  Sex: Male
  Weight: 14 kg

DRUGS (1)
  1. SINGULAIR [Suspect]
     Indication: BRONCHIAL HYPERREACTIVITY
     Route: 048
     Dates: start: 20090223, end: 20090225

REACTIONS (3)
  - AGITATION [None]
  - NIGHTMARE [None]
  - SLEEP DISORDER [None]
